FAERS Safety Report 10238775 (Version 3)
Quarter: 2014Q4

REPORT INFORMATION
  Report Type: Spontaneous
  Country: MX (occurrence: MX)
  Receive Date: 20140616
  Receipt Date: 20141024
  Transmission Date: 20150528
  Serious: Yes (Death, Hospitalization, Other)
  Sender: FDA-Public Use
  Company Number: MX-ELI_LILLY_AND_COMPANY-MX201406001813

PATIENT
  Age: 59 Year
  Sex: Female

DRUGS (1)
  1. FORTEO [Suspect]
     Active Substance: TERIPARATIDE
     Indication: BLOOD ELECTROLYTES
     Dosage: 20UG, QD
     Route: 058
     Dates: start: 201306

REACTIONS (8)
  - Loss of consciousness [Unknown]
  - Hepatitis [Unknown]
  - Dizziness [Unknown]
  - Death [Fatal]
  - Seizure [Unknown]
  - Nervous system disorder [Unknown]
  - Brain oedema [Unknown]
  - Off label use [Unknown]

NARRATIVE: CASE EVENT DATE: 201306
